FAERS Safety Report 6132760-6 (Version None)
Quarter: 2009Q1

REPORT INFORMATION
  Report Type: 
  Country: None (occurrence: None)
  Receive Date: 20090324
  Receipt Date: 20090324
  Transmission Date: 20090719
  Serious: No
  Sender: FDA-Public Use
  Company Number: None

PATIENT
  Sex: Female
  Weight: 65.5 kg

DRUGS (2)
  1. CYCLOPHOSPHAMIDE [Suspect]
     Dosage: 1070 MG
     Dates: end: 20080620
  2. DOXORUBICIN HYDROCHLORIDE [Suspect]
     Dosage: 105 MG
     Dates: end: 20080620

REACTIONS (9)
  - ASTHENIA [None]
  - BLOOD POTASSIUM DECREASED [None]
  - CATHETER SITE OEDEMA [None]
  - CATHETER SITE PAIN [None]
  - DIARRHOEA [None]
  - NAUSEA [None]
  - NEUTROPENIA [None]
  - SEPSIS [None]
  - VOMITING [None]
